FAERS Safety Report 11326923 (Version 2)
Quarter: 2015Q3

REPORT INFORMATION
  Report Type: Spontaneous
  Country: BR (occurrence: BR)
  Receive Date: 20150731
  Receipt Date: 20150825
  Transmission Date: 20151125
  Serious: Yes (Other)
  Sender: FDA-Public Use
  Company Number: BR-PFIZER INC-2015249732

PATIENT
  Age: 58 Year
  Sex: Male

DRUGS (2)
  1. SOAPEX [Concomitant]
     Dosage: UNK
     Dates: start: 201501
  2. FIBRASE [Suspect]
     Active Substance: CHLORAMPHENICOL
     Indication: WOUND
     Dosage: UNK, 2X/DAY (WHEN CHANGING THE DRESSINGS)
     Route: 061
     Dates: start: 201501

REACTIONS (1)
  - Impaired healing [Not Recovered/Not Resolved]

NARRATIVE: CASE EVENT DATE: 2015
